FAERS Safety Report 20596518 (Version 2)
Quarter: 2022Q3

REPORT INFORMATION
  Report Type: Other
  Country: US (occurrence: None)
  Receive Date: 20220315
  Receipt Date: 20220927
  Transmission Date: 20221026
  Serious: No
  Sender: FDA-Public Use
  Company Number: US-ROCHE-3048676

PATIENT
  Sex: Female
  Weight: 61.744 kg

DRUGS (3)
  1. OCREVUS [Suspect]
     Active Substance: OCRELIZUMAB
     Indication: Relapsing-remitting multiple sclerosis
     Dosage: LAST DATE OF TREATMENT: 18/JUN/2021, NEXT DATE OF TREATMENT: 25/JAN/2022
     Route: 042
     Dates: start: 20190701
  2. ADDERALL [Concomitant]
     Active Substance: AMPHETAMINE ASPARTATE\AMPHETAMINE SULFATE\DEXTROAMPHETAMINE SACCHARATE\DEXTROAMPHETAMINE SULFATE
     Indication: Attention deficit hyperactivity disorder
     Route: 048
     Dates: start: 2014
  3. SPRINTEC [Concomitant]
     Active Substance: ETHINYL ESTRADIOL\NORGESTIMATE
     Route: 048

REACTIONS (4)
  - COVID-19 [Unknown]
  - Insomnia [Not Recovered/Not Resolved]
  - CD19 lymphocytes decreased [Not Recovered/Not Resolved]
  - CD19 lymphocytes increased [Not Recovered/Not Resolved]

NARRATIVE: CASE EVENT DATE: 20200101
